FAERS Safety Report 9338558 (Version 2)
Quarter: 2014Q2

REPORT INFORMATION
  Report Type: Spontaneous
  Country: US (occurrence: US)
  Receive Date: 20130610
  Receipt Date: 20140521
  Transmission Date: 20141212
  Serious: No
  Sender: FDA-Public Use
  Company Number: US-PFIZER INC-2013174289

PATIENT
  Age: 65 Year
  Sex: Female
  Weight: 92.97 kg

DRUGS (6)
  1. LYRICA [Suspect]
     Indication: NEUROPATHY PERIPHERAL
     Dosage: 75 MG, 1X/DAY
  2. LYRICA [Suspect]
     Indication: FIBROMYALGIA
     Dosage: UNK, 1X/DAY
  3. LYRICA [Suspect]
     Dosage: UNK
     Dates: end: 2013
  4. LYRICA [Suspect]
     Dosage: 75 MG, 2X/DAY (ONE 75MG AT DAY AND ONE 75MG AT NIGHT)
     Dates: start: 2013, end: 201305
  5. LYRICA [Suspect]
     Dosage: 75 MG, ALTERNATE DAY (EVERT OTHER NIGHT)
     Dates: start: 201305
  6. PRISTIQ [Concomitant]

REACTIONS (2)
  - Weight increased [Unknown]
  - Tooth disorder [Unknown]
